FAERS Safety Report 9233754 (Version 1)
Quarter: 2013Q2

REPORT INFORMATION
  Report Type: Spontaneous
  Country: NL (occurrence: NL)
  Receive Date: 20130416
  Receipt Date: 20130416
  Transmission Date: 20140414
  Serious: Yes (Hospitalization)
  Sender: FDA-Public Use
  Company Number: PHHY2013NL034777

PATIENT
  Age: 70 Year
  Sex: Male

DRUGS (3)
  1. ZOMETA [Suspect]
     Indication: PROSTATE CANCER
     Dosage: 4 MG PER 100ML, ONCE EVERY 28 DAYS)
     Route: 042
  2. ZOMETA [Suspect]
     Dosage: 4 MG PER 100ML, ONCE EVERY 28 DAYS)
     Route: 042
     Dates: start: 20130321
  3. ZOMETA [Suspect]
     Dosage: 4 MG PER 100ML, ONCE EVERY 28 DAYS)
     Route: 042
     Dates: start: 20130409

REACTIONS (2)
  - Blood potassium abnormal [Unknown]
  - Blood calcium decreased [Unknown]
